FAERS Safety Report 4399694-9 (Version None)
Quarter: 2004Q3

REPORT INFORMATION
  Report Type: 
  Country: None (occurrence: None)
  Receive Date: 20040713
  Receipt Date: 20040629
  Transmission Date: 20050211
  Serious: Yes (Hospitalization)
  Sender: FDA-Public Use
  Company Number: US-JNJFOC-20040700243

PATIENT
  Age: 54 Year
  Sex: Female

DRUGS (8)
  1. INFLIXIMAB (INFLIXIMAB, RECOMBINANT) LYOPHILIZED POWDER [Suspect]
     Indication: RHEUMATOID ARTHRITIS
     Dosage: INTRAVENOUS (SEE IMAGE)
     Route: 042
     Dates: start: 20020501, end: 20020501
  2. INFLIXIMAB (INFLIXIMAB, RECOMBINANT) LYOPHILIZED POWDER [Suspect]
     Indication: RHEUMATOID ARTHRITIS
     Dosage: INTRAVENOUS (SEE IMAGE)
     Route: 042
     Dates: start: 20010521
  3. SYNTHROID [Concomitant]
  4. PREDNISONE [Concomitant]
  5. VIOXX [Concomitant]
  6. CALCIUM [Concomitant]
  7. ALEVE [Concomitant]
  8. MULTIVITAMIN (MULTIVITAMINS) [Concomitant]

REACTIONS (6)
  - ENDOMETRIAL SARCOMA [None]
  - HAEMATOCRIT DECREASED [None]
  - HAEMOGLOBIN DECREASED [None]
  - PLEURAL EFFUSION [None]
  - PYREXIA [None]
  - WHITE BLOOD CELL COUNT INCREASED [None]
